FAERS Safety Report 8910698 (Version 1)
Quarter: 2012Q4

REPORT INFORMATION
  Report Type: Spontaneous
  Country: NL (occurrence: None)
  Receive Date: 20121107
  Receipt Date: 20121107
  Transmission Date: 20130627
  Serious: Yes (Other)
  Sender: FDA-Public Use
  Company Number: FK201203277

PATIENT

DRUGS (2)
  1. CYTARABINE [Suspect]
  2. MITOXANTRONE [Suspect]

REACTIONS (2)
  - Thrombocytopenia [None]
  - Petechiae [None]
